FAERS Safety Report 5862628-1 (Version None)
Quarter: 2008Q3

REPORT INFORMATION
  Report Type: 
  Country: None (occurrence: None)
  Receive Date: 20080827
  Receipt Date: 20080827
  Transmission Date: 20090109
  Serious: Yes (Hospitalization)
  Sender: FDA-Public Use
  Company Number: None

PATIENT
  Age: 45 Year
  Sex: Male
  Weight: 70.3075 kg

DRUGS (1)
  1. PSYLLIUM HUSK CAPS  500 MG  NOW FOODS [Suspect]
     Indication: IRRITABLE BOWEL SYNDROME
     Dosage: 3 SERVINGS DAILY PO
     Route: 048
     Dates: start: 20080620, end: 20080731

REACTIONS (2)
  - BLOOD PRESSURE INCREASED [None]
  - THERAPEUTIC PRODUCT CONTAMINATION [None]
